FAERS Safety Report 18477596 (Version 2)
Quarter: 2021Q2

REPORT INFORMATION
  Report Type: Spontaneous
  Country: US (occurrence: US)
  Receive Date: 20201107
  Receipt Date: 20210409
  Transmission Date: 20210717
  Serious: Yes (Other)
  Sender: FDA-Public Use
  Company Number: US-PURDUE-USA-2020-0171221

PATIENT
  Sex: Female

DRUGS (1)
  1. OXYCONTIN [Suspect]
     Active Substance: OXYCODONE HYDROCHLORIDE
     Indication: PRODUCT USED FOR UNKNOWN INDICATION
     Dosage: UNK
     Route: 048

REACTIONS (13)
  - Aggression [Unknown]
  - Suicidal ideation [Unknown]
  - Emotional distress [Unknown]
  - Drug dependence [Unknown]
  - Drug abuse [Unknown]
  - Psychological trauma [Unknown]
  - Anxiety [Unknown]
  - Substance-induced mood disorder [Unknown]
  - Pain [Unknown]
  - Prescribed overdose [Unknown]
  - Nervous system injury [Unknown]
  - Injury [Unknown]
  - Thinking abnormal [Unknown]
